FAERS Safety Report 6305431-0 (Version None)
Quarter: 2009Q3

REPORT INFORMATION
  Report Type: 
  Country: None (occurrence: None)
  Receive Date: 20090811
  Receipt Date: 20090803
  Transmission Date: 20100115
  Serious: Yes (Other)
  Sender: FDA-Public Use
  Company Number: BR-ABBOTT-09P-020-0589216-00

PATIENT
  Sex: Female
  Weight: 67 kg

DRUGS (3)
  1. HUMIRA [Suspect]
     Indication: RHEUMATOID ARTHRITIS
     Route: 058
     Dates: start: 20070101
  2. ACLASTA [Suspect]
     Indication: FALL
  3. GLUCOSAMINE/CHONDROITIN [Concomitant]
     Indication: CHONDROPATHY
     Route: 048
     Dates: start: 20090501

REACTIONS (8)
  - BONE LESION [None]
  - FALL [None]
  - INFLAMMATION [None]
  - INJECTION SITE PAIN [None]
  - PAIN [None]
  - PYREXIA [None]
  - RHEUMATOID ARTHRITIS [None]
  - WRIST FRACTURE [None]
